FAERS Safety Report 5717317-0 (Version None)
Quarter: 2008Q2

REPORT INFORMATION
  Report Type: 
  Country: None (occurrence: None)
  Receive Date: 20080424
  Receipt Date: 20080424
  Transmission Date: 20081010
  Serious: Yes (Disabling)
  Sender: FDA-Public Use
  Company Number: None

PATIENT
  Age: 50 Year
  Sex: Male
  Weight: 107.5 kg

DRUGS (1)
  1. RALTEGRAVIR [Suspect]
     Indication: HIV INFECTION
     Dosage: 400MG BID PO
     Route: 048
     Dates: start: 20080130, end: 20080222

REACTIONS (2)
  - BLOOD CREATINE PHOSPHOKINASE INCREASED [None]
  - BLOOD CREATININE INCREASED [None]
